FAERS Safety Report 14794648 (Version 4)
Quarter: 2018Q3

REPORT INFORMATION
  Report Type: Spontaneous
  Country: US (occurrence: US)
  Receive Date: 20180423
  Receipt Date: 20180719
  Transmission Date: 20181010
  Serious: Yes (Hospitalization, Other)
  Sender: FDA-Public Use
  Company Number: US-PFIZER INC-2018158989

PATIENT
  Age: 53 Year
  Sex: Female

DRUGS (2)
  1. METHOTREXATE SODIUM. [Suspect]
     Active Substance: METHOTREXATE SODIUM
     Dosage: UNK
  2. ENBREL [Suspect]
     Active Substance: ETANERCEPT
     Dosage: UNK

REACTIONS (13)
  - Oedema peripheral [Unknown]
  - Sepsis [Unknown]
  - Cellulitis [Unknown]
  - Arthritis infective [Unknown]
  - Acute sinusitis [Unknown]
  - Arthralgia [Unknown]
  - Nausea [Unknown]
  - Musculoskeletal stiffness [Unknown]
  - Cough [Unknown]
  - Diabetic ketoacidosis [Unknown]
  - Nasal congestion [Unknown]
  - Myositis [Unknown]
  - Limb injury [Not Recovered/Not Resolved]
